FAERS Safety Report 12585797 (Version 1)
Quarter: 2016Q3

REPORT INFORMATION
  Report Type: Spontaneous
  Country: DK (occurrence: DK)
  Receive Date: 20160725
  Receipt Date: 20160725
  Transmission Date: 20161109
  Serious: Yes (Death, Hospitalization)
  Sender: FDA-Public Use
  Company Number: DK-STRIDES ARCOLAB LIMITED-2016SP010170

PATIENT

DRUGS (3)
  1. MYCOPHENOLATE MOFETIL. [Suspect]
     Active Substance: MYCOPHENOLATE MOFETIL
     Indication: PYODERMA GANGRENOSUM
     Dosage: UNK
  2. INFLIXIMAB [Suspect]
     Active Substance: INFLIXIMAB
     Indication: PYODERMA GANGRENOSUM
     Dosage: 400 MG, ON TWO OCCASIONS 14 DAYS APART
     Route: 042
  3. GLUCOCORTICOIDS [Suspect]
     Active Substance: UNSPECIFIED INGREDIENT
     Indication: PYODERMA GANGRENOSUM
     Dosage: UNK

REACTIONS (16)
  - Encephalopathy [Fatal]
  - Eye pain [Unknown]
  - Blindness [Unknown]
  - Eyelid ptosis [Unknown]
  - Encephalitis [Unknown]
  - Orbital apex syndrome [Unknown]
  - Ophthalmoplegia [Unknown]
  - Periorbital oedema [Unknown]
  - Loss of consciousness [Unknown]
  - Pyrexia [Unknown]
  - Paraesthesia [Unknown]
  - Consciousness fluctuating [Unknown]
  - Off label use [Unknown]
  - Mydriasis [Unknown]
  - Varicella zoster virus infection [Unknown]
  - Pupil fixed [Unknown]
